FAERS Safety Report 22205705 (Version 1)
Quarter: 2023Q2

REPORT INFORMATION
  Report Type: Spontaneous
  Country: DK (occurrence: DK)
  Receive Date: 20230413
  Receipt Date: 20230413
  Transmission Date: 20230722
  Serious: Yes (Hospitalization)
  Sender: FDA-Public Use
  Company Number: None

PATIENT
  Age: 68 Year
  Sex: Male
  Weight: 83 kg

DRUGS (10)
  1. RIVAROXABAN [Suspect]
     Active Substance: RIVAROXABAN
     Indication: Thrombosis prophylaxis
     Dosage: STRENGTH: 20 MG
     Route: 048
     Dates: start: 20170428, end: 20200604
  2. TRAMADOL [Concomitant]
     Active Substance: TRAMADOL
     Indication: Pain
     Dosage: DOSAGE: MAX 3 TIMES A DAY. STRENGTH: 50 MG
     Route: 048
     Dates: start: 20150519, end: 20170517
  3. LYRICA [Concomitant]
     Active Substance: PREGABALIN
     Indication: Pain
     Dosage: STRENGTH: 75 MG
     Route: 048
     Dates: start: 20150519, end: 20180625
  4. RAMIPRIL [Concomitant]
     Active Substance: RAMIPRIL
     Indication: Cardiac failure
     Dosage: STRENGTH: 5 MG
     Route: 048
     Dates: start: 20150519, end: 20170626
  5. ATORVASTATIN CALCIUM [Concomitant]
     Active Substance: ATORVASTATIN CALCIUM
     Indication: Hypercholesterolaemia
     Dosage: STRENGTH: 80 MG
     Route: 048
     Dates: start: 20150519, end: 20180625
  6. WARFARIN SODIUM [Concomitant]
     Active Substance: WARFARIN SODIUM
     Indication: Anticoagulant therapy
     Dosage: DIOSAGE: 2.5 - 5 MG ONCE A DAY. STRENGTH: 2.5 MG
     Route: 048
     Dates: start: 20170318
  7. ACETAMINOPHEN [Concomitant]
     Active Substance: ACETAMINOPHEN
     Indication: Pain
     Dosage: STRENGTH: 665 MG
     Route: 048
     Dates: start: 20170318
  8. METOPROLOL SUCCINATE [Concomitant]
     Active Substance: METOPROLOL SUCCINATE
     Indication: Heart rate irregular
     Dosage: STRENGTH: 100 MG
     Route: 048
     Dates: start: 20170321, end: 20200710
  9. GEMADOL [ETOFENAMATE] [Concomitant]
     Indication: Pain
     Dosage: STRENGTH: 50 MG
     Route: 048
     Dates: start: 20170412, end: 20180601
  10. CENTYL MITE MED KALIUMKLORID [Concomitant]
     Indication: Hypertension
     Dosage: DF: 1 TABLET. STRENGTH: 1.25+573 MG
     Route: 048
     Dates: start: 20150519

REACTIONS (2)
  - Chest pain [Recovered/Resolved]
  - Anaemia [Recovered/Resolved]

NARRATIVE: CASE EVENT DATE: 20170428
